FAERS Safety Report 7743681-7 (Version None)
Quarter: 2011Q3

REPORT INFORMATION
  Report Type: 
  Country: None (occurrence: None)
  Receive Date: 20110912
  Receipt Date: 20110902
  Transmission Date: 20111222
  Serious: Yes (Death, Hospitalization, Other)
  Sender: FDA-Public Use
  Company Number: JP-MPIJNJ-2011-01104

PATIENT

DRUGS (12)
  1. VELCADE [Suspect]
     Indication: MULTIPLE MYELOMA
     Dosage: 1.0 MG/M2, UNK
     Route: 042
     Dates: start: 20110119, end: 20110311
  2. DEXAMETHASONE [Concomitant]
     Dosage: 20 MG, QD
     Route: 048
     Dates: start: 20110311, end: 20110312
  3. RABEPRAZOLE SODIUM [Concomitant]
     Dosage: 10 MG, QD
     Route: 048
     Dates: start: 20110119
  4. DEXAMETHASONE [Concomitant]
     Indication: MULTIPLE MYELOMA
     Dosage: 20 MG, QD
     Route: 048
     Dates: start: 20110119, end: 20110120
  5. FEXOFENADINE HCL [Concomitant]
     Indication: RHINITIS ALLERGIC
     Dosage: 120 MG, QD
     Route: 048
     Dates: start: 20110221, end: 20110315
  6. CANDESARTAN CILEXETIL [Concomitant]
     Indication: BLOOD PRESSURE MANAGEMENT
     Dosage: 4 MG, QD
     Route: 048
     Dates: start: 20101201, end: 20110316
  7. ACYCLOVIR [Concomitant]
     Indication: ANTIVIRAL PROPHYLAXIS
     Dosage: 200 MG, QD
     Route: 048
     Dates: start: 20110119, end: 20110316
  8. ALLOPURINOL [Concomitant]
     Indication: BLOOD URIC ACID INCREASED
     Dosage: 200 MG, QD
     Route: 048
     Dates: start: 20110122, end: 20110316
  9. MECOBALAMIN [Concomitant]
     Indication: NEUROPATHY PERIPHERAL
     Dosage: 1500 UG, QD
     Route: 048
     Dates: end: 20110316
  10. DEXAMETHASONE [Concomitant]
     Dosage: 20 MG, QD
     Route: 048
     Dates: start: 20110308, end: 20110309
  11. SULFAMETHOXAZOLE [Concomitant]
     Indication: ANTIFUNGAL PROPHYLAXIS
     Dosage: 1 G, QD
     Route: 048
     Dates: start: 20101219, end: 20110316
  12. LAC B [Concomitant]
     Indication: DIARRHOEA
     Dosage: 30 MG, QD
     Route: 048
     Dates: start: 20110215, end: 20110303

REACTIONS (5)
  - DIARRHOEA [None]
  - BLOOD URIC ACID INCREASED [None]
  - RENAL IMPAIRMENT [None]
  - ILEUS PARALYTIC [None]
  - OROPHARYNGEAL DISCOMFORT [None]
